FAERS Safety Report 9856940 (Version 1)
Quarter: 2014Q1

REPORT INFORMATION
  Report Type: Spontaneous
  Country: US (occurrence: US)
  Receive Date: 20140130
  Receipt Date: 20140130
  Transmission Date: 20141002
  Serious: Yes (Hospitalization)
  Sender: FDA-Public Use
  Company Number: US-ASTRAZENECA-2014SE05246

PATIENT
  Sex: Male

DRUGS (1)
  1. BRILINTA [Suspect]
     Indication: MYOCARDIAL INFARCTION
     Route: 048
     Dates: start: 201310

REACTIONS (2)
  - Myocardial infarction [Unknown]
  - Drug dose omission [Unknown]
